FAERS Safety Report 5066036-5 (Version None)
Quarter: 2006Q3

REPORT INFORMATION
  Report Type: 
  Country: None (occurrence: None)
  Receive Date: 20060731
  Receipt Date: 20050722
  Transmission Date: 20061208
  Serious: No
  Sender: FDA-Public Use
  Company Number: US-AMGEN-US143769

PATIENT
  Sex: Female

DRUGS (10)
  1. KINERET [Suspect]
     Indication: DRUG USE FOR UNKNOWN INDICATION
     Route: 058
     Dates: start: 20050708
  2. FOLIC ACID [Concomitant]
     Route: 065
     Dates: start: 20050608
  3. LOPID [Concomitant]
     Route: 065
  4. CYCLOBENZAPRINE HCL [Concomitant]
     Route: 065
     Dates: start: 20041220
  5. AMBIEN [Concomitant]
     Route: 065
     Dates: start: 20051123
  6. PLAQUENIL [Concomitant]
     Route: 065
     Dates: start: 20040329
  7. METHOTREXATE [Concomitant]
     Route: 065
     Dates: start: 20041021
  8. NAPROXEN [Concomitant]
     Route: 065
     Dates: start: 20050823
  9. NEURONTIN [Concomitant]
     Route: 065
     Dates: start: 20040329
  10. PRILOSEC [Concomitant]
     Route: 065

REACTIONS (6)
  - INJECTION SITE ERYTHEMA [None]
  - INJECTION SITE PAIN [None]
  - INJECTION SITE REACTION [None]
  - INJECTION SITE SWELLING [None]
  - LATEX ALLERGY [None]
  - URTICARIA [None]
